FAERS Safety Report 20991510 (Version 1)
Quarter: 2022Q2

REPORT INFORMATION
  Report Type: Spontaneous
  Country: US (occurrence: US)
  Receive Date: 20220622
  Receipt Date: 20220622
  Transmission Date: 20220720
  Serious: No
  Sender: FDA-Public Use
  Company Number: US-Accord-261862

PATIENT
  Sex: Male
  Weight: 81.65 kg

DRUGS (1)
  1. CLONAZEPAM [Suspect]
     Active Substance: CLONAZEPAM
     Indication: Generalised anxiety disorder
     Dosage: STRENGTH: 1MG, TWICE DAILY AS NEEDED FOR ANXIETY
     Route: 048
     Dates: start: 20220331

REACTIONS (3)
  - Drug ineffective [Unknown]
  - Product substitution issue [Unknown]
  - Off label use [Unknown]
